FAERS Safety Report 5497729-3 (Version None)
Quarter: 2007Q4

REPORT INFORMATION
  Report Type: 
  Country: None (occurrence: None)
  Receive Date: 20071025
  Receipt Date: 20070215
  Transmission Date: 20080405
  Serious: No
  Sender: FDA-Public Use
  Company Number: A0639703A

PATIENT
  Age: 66 Year
  Sex: Female

DRUGS (5)
  1. ADVAIR DISKUS 100/50 [Suspect]
     Indication: RESPIRATORY DISORDER
     Dosage: 1PUFF ALTERNATE DAYS
     Route: 055
     Dates: start: 20030101
  2. THYROID TAB [Concomitant]
  3. DIABETES MEDICATION [Concomitant]
  4. UNKNOWN MEDICATION [Concomitant]
  5. IBUPROFEN [Concomitant]

REACTIONS (6)
  - DIZZINESS [None]
  - DYSPNOEA [None]
  - EXPIRED DRUG ADMINISTERED [None]
  - HEADACHE [None]
  - INCREASED UPPER AIRWAY SECRETION [None]
  - THERAPEUTIC RESPONSE DECREASED [None]
